FAERS Safety Report 8908425 (Version 1)
Quarter: 2012Q4

REPORT INFORMATION
  Report Type: 
  Country: US (occurrence: US)
  Receive Date: 20121114
  Receipt Date: 20121114
  Transmission Date: 20130627
  Serious: No
  Sender: FDA-Public Use
  Company Number: US-PFIZER INC-2012281620

PATIENT
  Age: 69 Year
  Sex: Female
  Weight: 61.22 kg

DRUGS (7)
  1. SUTENT [Suspect]
     Indication: GASTROINTESTINAL STROMAL TUMOUR
     Dosage: 37.5 mg, UNK (25 + 12.5 mg)
     Dates: start: 20110930, end: 20111231
  2. SUTENT [Suspect]
     Dosage: 25 mg, UNK (14 days followed by rest for seven days)
     Dates: start: 20120116
  3. TOPROL [Concomitant]
     Dosage: UNK, as needed
  4. SIMVASTATIN [Concomitant]
     Dosage: UNK, as needed
  5. TRIAMTERENE [Concomitant]
     Dosage: UNK, as needed
  6. LORAZEPAM [Concomitant]
     Dosage: UNK, as needed
  7. ZOLPIDEM [Concomitant]
     Indication: SLEEP DISORDER
     Dosage: 10 mg, (One half tablet) as needed

REACTIONS (8)
  - Mucosal inflammation [Recovered/Resolved]
  - Diarrhoea [Unknown]
  - Bladder disorder [Unknown]
  - Cough [Unknown]
  - Gastrooesophageal reflux disease [Unknown]
  - Nasal discomfort [Recovering/Resolving]
  - Palmar-plantar erythrodysaesthesia syndrome [Unknown]
  - Impaired healing [Unknown]
